FAERS Safety Report 8616826-4 (Version None)
Quarter: 2012Q3

REPORT INFORMATION
  Report Type: 
  Country: None (occurrence: None)
  Receive Date: 20120823
  Receipt Date: 20120808
  Transmission Date: 20120928
  Serious: No
  Sender: FDA-Public Use
  Company Number: US-009507513-1208USA004202

PATIENT

DRUGS (5)
  1. IMPLANON [Suspect]
     Indication: CONTRACEPTION
     Dosage: 1 DF, UNK
     Route: 059
     Dates: start: 20120427
  2. SERTRALINE HYDROCHLORIDE [Concomitant]
  3. CLONAZEPAM [Concomitant]
  4. VITAMINS (UNSPECIFIED) [Concomitant]
  5. HALOPERIDOL [Concomitant]

REACTIONS (1)
  - METRORRHAGIA [None]
